FAERS Safety Report 6732867-6 (Version None)
Quarter: 2010Q2

REPORT INFORMATION
  Report Type: 
  Country: None (occurrence: None)
  Receive Date: 20100517
  Receipt Date: 20100511
  Transmission Date: 20101027
  Serious: Yes (Other)
  Sender: FDA-Public Use
  Company Number: CAP09000383

PATIENT
  Age: 63 Year
  Sex: Female

DRUGS (4)
  1. ACTONEL [Suspect]
     Indication: OSTEOPENIA
     Dosage: 35 MG ONCE WEEKLY, ORAL
     Route: 048
     Dates: end: 20080601
  2. LEVOTHYROXINE SODIUM [Concomitant]
  3. VITAMIN B12 [Concomitant]
  4. CALTRATE WITH VITAMIN D (CALCIUM CARBONATE, COLECALCIFEROL) [Concomitant]

REACTIONS (1)
  - BREAST CANCER [None]
